FAERS Safety Report 5927252-0 (Version None)
Quarter: 2008Q4

REPORT INFORMATION
  Report Type: 
  Country: None (occurrence: None)
  Receive Date: 20081017
  Receipt Date: 20081007
  Transmission Date: 20090506
  Serious: Yes (Hospitalization)
  Sender: FDA-Public Use
  Company Number: IPS_01313_2008

PATIENT
  Age: 82 Year
  Sex: Male

DRUGS (1)
  1. APO-GO (APO-GO - APOMORPHINE HYDROCHLORIDE) (NOT SPECIFIED) [Suspect]
     Indication: PARKINSON'S DISEASE
     Dosage: 85 MG FOR 1 DAY SUBCUTANEOUS
     Route: 058
     Dates: start: 20080923, end: 20080924

REACTIONS (1)
  - HYPOGLYCAEMIA [None]
